FAERS Safety Report 10149286 (Version 1)
Quarter: 2014Q2

REPORT INFORMATION
  Report Type: Spontaneous
  Country: US (occurrence: None)
  Receive Date: 20140430
  Receipt Date: 20140430
  Transmission Date: 20141212
  Serious: Yes (Other)
  Sender: FDA-Public Use
  Company Number: 001720630A

PATIENT
  Age: 48 Year
  Sex: Male

DRUGS (3)
  1. MB ANTIOXIDANT DAY CREME SPF 20 [Suspect]
     Dates: start: 20140202
  2. MB SKIN BRIGHTENING DECOLLETE+NECK TREATMENT [Suspect]
     Dates: start: 20140202
  3. DAILY MULTIVITAMIN [Concomitant]

REACTIONS (3)
  - Swelling face [None]
  - Dyspnoea [None]
  - Hypersensitivity [None]
